FAERS Safety Report 9843337 (Version 1)
Quarter: 2013Q4

REPORT INFORMATION
  Report Type: Spontaneous
  Country: US (occurrence: None)
  Receive Date: 20131223
  Receipt Date: 20131223
  Transmission Date: 20140711
  Serious: No
  Sender: FDA-Public Use
  Company Number: 219675LEO

PATIENT
  Sex: 0

DRUGS (4)
  1. PICATO (0.015 %) [Suspect]
     Indication: ACTINIC KERATOSIS
     Dosage: FOR 3 DAYS, ON FOREHEAD
     Dates: start: 20121112, end: 20121114
  2. RAMIPRIL (RAMIPRIL) [Concomitant]
  3. LIPITOR (ATPRVASTATIN CALCIUM) [Concomitant]
  4. FISH OIL (FISH OIL) [Concomitant]

REACTIONS (6)
  - Burning sensation [None]
  - Discomfort [None]
  - Drug administration error [None]
  - Application site swelling [None]
  - Eye swelling [None]
  - Eyelid ptosis [None]
